FAERS Safety Report 6231544-8 (Version None)
Quarter: 2009Q2

REPORT INFORMATION
  Report Type: 
  Country: None (occurrence: None)
  Receive Date: 20090612
  Receipt Date: 20090612
  Transmission Date: 20091009
  Serious: Yes (Other)
  Sender: FDA-Public Use
  Company Number: None

PATIENT
  Age: 24 Year
  Sex: Male
  Weight: 88.4514 kg

DRUGS (1)
  1. CHANTIX [Suspect]
     Indication: SMOKING CESSATION THERAPY
     Dosage: 1MG 2 X PER DAY PO
     Route: 048
     Dates: start: 20081201, end: 20090401

REACTIONS (4)
  - AGEUSIA [None]
  - BIPOLAR I DISORDER [None]
  - CONSTIPATION [None]
  - INSOMNIA [None]
